FAERS Safety Report 8538600-X (Version None)
Quarter: 2012Q3

REPORT INFORMATION
  Report Type: 
  Country: None (occurrence: None)
  Receive Date: 20120726
  Receipt Date: 20120718
  Transmission Date: 20120928
  Serious: Yes (Hospitalization, Other)
  Sender: FDA-Public Use
  Company Number: US-US-EMD SERONO, INC.-7081233

PATIENT
  Sex: Female

DRUGS (2)
  1. REBIF [Suspect]
     Indication: PRODUCT USED FOR UNKNOWN INDICATION
     Route: 058
     Dates: start: 20060818
  2. REBIF [Suspect]
     Route: 058
     Dates: start: 20110902, end: 20120401

REACTIONS (3)
  - RED BLOOD CELL COUNT DECREASED [None]
  - HEPATIC INFECTION [None]
  - LIVER FUNCTION TEST ABNORMAL [None]
